FAERS Safety Report 13242743 (Version 1)
Quarter: 2017Q1

REPORT INFORMATION
  Report Type: Spontaneous
  Country: DE (occurrence: DE)
  Receive Date: 20170216
  Receipt Date: 20170216
  Transmission Date: 20170428
  Serious: Yes (Other)
  Sender: FDA-Public Use
  Company Number: DE-MYLANLABS-2017M1008617

PATIENT

DRUGS (2)
  1. MAGNESIUM [Concomitant]
     Active Substance: MAGNESIUM
     Indication: PRODUCT USED FOR UNKNOWN INDICATION
     Dosage: 4 DF, QD
  2. PANTOPRAZOL DURA 40 MG MAGENSAFTRESISTENTE TABLETTEN [Suspect]
     Active Substance: PANTOPRAZOLE SODIUM
     Indication: REFLUX GASTRITIS
     Dosage: UNK, QD
     Dates: start: 2012

REACTIONS (2)
  - Hypokalaemia [Not Recovered/Not Resolved]
  - Magnesium deficiency [Not Recovered/Not Resolved]
